FAERS Safety Report 24417537 (Version 1)
Quarter: 2024Q4

REPORT INFORMATION
  Report Type: Spontaneous
  Country: US (occurrence: None)
  Receive Date: 20241008
  Receipt Date: 20241008
  Transmission Date: 20250115
  Serious: No
  Sender: Public
  Company Number: None

PATIENT
  Sex: 0

DRUGS (4)
  1. IMITREX [Suspect]
     Active Substance: SUMATRIPTAN SUCCINATE
  2. MAXALT [Concomitant]
     Active Substance: RIZATRIPTAN BENZOATE
  3. SUCCINYLCHOLINE [Concomitant]
     Active Substance: SUCCINYLCHOLINE\SUCCINYLCHOLINE CHLORIDE
  4. ZONISAMIDE [Concomitant]
     Active Substance: ZONISAMIDE

REACTIONS (2)
  - Drug hypersensitivity [None]
  - Treatment failure [None]
